FAERS Safety Report 7829130-9 (Version None)
Quarter: 2011Q4

REPORT INFORMATION
  Report Type: 
  Country: None (occurrence: None)
  Receive Date: 20111020
  Receipt Date: 20111011
  Transmission Date: 20120403
  Serious: Yes (Other)
  Sender: FDA-Public Use
  Company Number: PHHY2011CN90429

PATIENT
  Age: 27 Year
  Sex: Male

DRUGS (2)
  1. DICLOFENAC SODIUM [Suspect]
     Indication: SYNOVITIS
     Dosage: 25 MG, TID
     Route: 048
     Dates: start: 20110601
  2. DICLOFENAC SODIUM [Suspect]
     Dosage: 75 MG, QD
     Route: 048

REACTIONS (4)
  - PETECHIAE [None]
  - DRUG EFFECT DECREASED [None]
  - ABDOMINAL PAIN UPPER [None]
  - ABDOMINAL DISCOMFORT [None]
